FAERS Safety Report 5664162-0 (Version None)
Quarter: 2008Q1

REPORT INFORMATION
  Report Type: 
  Country: None (occurrence: None)
  Receive Date: 20080312
  Receipt Date: 20080227
  Transmission Date: 20080703
  Serious: Yes (Hospitalization)
  Sender: FDA-Public Use
  Company Number: 231986J08USA

PATIENT
  Age: 43 Year
  Sex: Male

DRUGS (3)
  1. REBIF [Suspect]
     Indication: OFF LABEL USE
     Dosage: 44 MCG, 3 IN 1 WEEKS, SUBCUTANEOUS
     Route: 058
     Dates: start: 20070827
  2. ANTIDEPRESSANT          (ANTIDEPRESSANT) [Suspect]
     Indication: DEPRESSION
     Dates: start: 20070827
  3. SOLU-MEDROL [Concomitant]

REACTIONS (3)
  - BACK PAIN [None]
  - MUSCULOSKELETAL CHEST PAIN [None]
  - PULMONARY THROMBOSIS [None]
